FAERS Safety Report 24765274 (Version 1)
Quarter: 2024Q4

REPORT INFORMATION
  Report Type: Spontaneous
  Country: US (occurrence: None)
  Receive Date: 20241219
  Receipt Date: 20241219
  Transmission Date: 20250114
  Serious: Yes (Hospitalization)
  Sender: Public
  Company Number: None

PATIENT
  Age: 35 Year
  Sex: Male

DRUGS (1)
  1. LISINOPRIL [Suspect]
     Active Substance: LISINOPRIL
     Indication: Hypertension

REACTIONS (5)
  - Anaphylactic reaction [None]
  - Angioedema [None]
  - Swollen tongue [None]
  - Pharyngeal swelling [None]
  - Dysphonia [None]

NARRATIVE: CASE EVENT DATE: 20240721
